FAERS Safety Report 23033403 (Version 1)
Quarter: 2023Q4

REPORT INFORMATION
  Report Type: Spontaneous
  Country: CZ (occurrence: CZ)
  Receive Date: 20231005
  Receipt Date: 20231005
  Transmission Date: 20240110
  Serious: Yes (Hospitalization, Other)
  Sender: FDA-Public Use
  Company Number: None

PATIENT
  Age: 13 Year
  Sex: Female

DRUGS (4)
  1. GLIPIZIDE [Suspect]
     Active Substance: GLIPIZIDE
     Dosage: UNK
     Dates: start: 20210429
  2. ERDOSTEINE [Suspect]
     Active Substance: ERDOSTEINE
     Dosage: UNK
     Dates: start: 20210429
  3. ACETAMINOPHEN [Suspect]
     Active Substance: ACETAMINOPHEN
     Dosage: 15 TABLETS
     Dates: start: 20210429
  4. DESLORATADINE [Suspect]
     Active Substance: DESLORATADINE
     Dosage: UNK
     Dates: start: 20210429

REACTIONS (2)
  - Intentional overdose [Recovered/Resolved]
  - Suicide attempt [Recovered/Resolved]

NARRATIVE: CASE EVENT DATE: 20210429
